FAERS Safety Report 7733732 (Version 6)
Quarter: 2013Q2

REPORT INFORMATION
  Report Type: Spontaneous
  Country: ES (occurrence: ES)
  Receive Date: 20101223
  Receipt Date: 20130509
  Transmission Date: 20140414
  Serious: Yes (Hospitalization, Other)
  Sender: FDA-Public Use
  Company Number: ES-PFIZER INC-2010177416

PATIENT
  Age: 65 Year
  Sex: Female

DRUGS (4)
  1. SERTRALINE HCL [Suspect]
     Dosage: UNK
  2. ENALAPRIL [Suspect]
     Dosage: UNK
  3. LEVETIRACETAM [Suspect]
     Indication: NEUROLOGICAL SYMPTOM
     Dosage: 250 MG EVERY 8 HOURS
     Route: 048
  4. CLONAZEPAM [Concomitant]
     Dosage: UNK

REACTIONS (8)
  - Confusional state [Unknown]
  - Fall [Unknown]
  - Inappropriate antidiuretic hormone secretion [Unknown]
  - Sensory loss [Unknown]
  - Hyponatraemia [Recovered/Resolved]
  - Depressed level of consciousness [Unknown]
  - Disorientation [Unknown]
  - Major depression [Unknown]
